FAERS Safety Report 16224235 (Version 1)
Quarter: 2019Q2

REPORT INFORMATION
  Report Type: Spontaneous
  Country: JP (occurrence: JP)
  Receive Date: 20190422
  Receipt Date: 20190422
  Transmission Date: 20190711
  Serious: Yes (Hospitalization)
  Sender: FDA-Public Use
  Company Number: JP-BAYER-2019-077754

PATIENT
  Age: 8 Decade
  Sex: Female

DRUGS (1)
  1. ASPIRIN 100 % [Suspect]
     Active Substance: ASPIRIN
     Route: 048

REACTIONS (2)
  - Decreased activity [None]
  - Pulmonary embolism [None]

NARRATIVE: CASE EVENT DATE: 201408
